FAERS Safety Report 10361248 (Version 5)
Quarter: 2014Q4

REPORT INFORMATION
  Report Type: Report from Study
  Country: US (occurrence: US)
  Receive Date: 20140804
  Receipt Date: 20141210
  Transmission Date: 20150528
  Serious: Yes (Congenital Anomaly)
  Sender: FDA-Public Use
  Company Number: US-ABBVIE-13P-163-1158321-00

PATIENT
  Age: 1 Day
  Sex: Male

DRUGS (1)
  1. HUMIRA [Suspect]
     Active Substance: ADALIMUMAB
     Indication: MATERNAL EXPOSURE TIMING UNSPECIFIED
     Route: 064

REACTIONS (10)
  - Cataract congenital [Not Recovered/Not Resolved]
  - Dacryostenosis congenital [Recovering/Resolving]
  - Hypotonia [Not Recovered/Not Resolved]
  - Cardiac murmur [Recovered/Resolved]
  - Developmental delay [Not Recovered/Not Resolved]
  - Atrial septal defect [Recovered/Resolved]
  - Congenital musculoskeletal anomaly [Not Recovered/Not Resolved]
  - Intraocular pressure increased [Unknown]
  - Foetal exposure during pregnancy [Unknown]
  - Pulmonary artery stenosis congenital [Not Recovered/Not Resolved]

NARRATIVE: CASE EVENT DATE: 2014
